FAERS Safety Report 8624593-3 (Version None)
Quarter: 2012Q3

REPORT INFORMATION
  Report Type: 
  Country: None (occurrence: None)
  Receive Date: 20120827
  Receipt Date: 20120815
  Transmission Date: 20120928
  Serious: Yes (Hospitalization)
  Sender: FDA-Public Use
  Company Number: US-SHIRE-ALL1-2012-03882

PATIENT
  Sex: Male
  Weight: 64.399 kg

DRUGS (3)
  1. LISDEXAMFETAMINE DIMESYLATE (VYVANSE) [Suspect]
     Indication: DEPRESSION
     Dosage: 50 MG, 1X/DAY:QD
     Route: 048
     Dates: start: 20120706, end: 20120812
  2. LISDEXAMFETAMINE DIMESYLATE (VYVANSE) [Suspect]
     Dosage: UNK UNK, 1X/DAY:QD
     Route: 048
     Dates: start: 20120628
  3. CYMBALTA [Concomitant]
     Indication: DEPRESSION
     Dosage: UNK UNK, 1X/DAY:QD
     Route: 048
     Dates: start: 20120228

REACTIONS (2)
  - SUICIDAL IDEATION [None]
  - HALLUCINATION, AUDITORY [None]
